FAERS Safety Report 23610634 (Version 1)
Quarter: 2024Q1

REPORT INFORMATION
  Report Type: Spontaneous
  Country: US (occurrence: US)
  Receive Date: 20240308
  Receipt Date: 20240308
  Transmission Date: 20240410
  Serious: No
  Sender: FDA-Public Use
  Company Number: US-BAYER-2024A027343

PATIENT
  Age: 64 Year
  Sex: Female

DRUGS (18)
  1. GADAVIST [Suspect]
     Active Substance: GADOBUTROL
     Indication: Product used for unknown indication
     Dosage: UNK, ONCE
  2. XANAX [Concomitant]
     Active Substance: ALPRAZOLAM
  3. LIPITOR [Concomitant]
     Active Substance: ATORVASTATIN CALCIUM
  4. PLETAL [Concomitant]
     Active Substance: CILOSTAZOL
  5. CEFIXIME [Concomitant]
     Active Substance: CEFIXIME
  6. COLACE [Concomitant]
     Active Substance: DOCUSATE SODIUM
  7. FOLVITE [Concomitant]
     Active Substance: FOLIC ACID
  8. LASIX [Concomitant]
     Active Substance: FUROSEMIDE
  9. NORCO [Concomitant]
     Active Substance: ACETAMINOPHEN\HYDROCODONE BITARTRATE
  10. SYNTHROID [Concomitant]
     Active Substance: LEVOTHYROXINE SODIUM
  11. LINZESS [Concomitant]
     Active Substance: LINACLOTIDE
  12. MAGNESIUM GLYCINATE [Concomitant]
     Active Substance: MAGNESIUM GLYCINATE
  13. TREXALL [Concomitant]
     Active Substance: METHOTREXATE SODIUM
  14. ZOFRAN [Concomitant]
     Active Substance: ONDANSETRON HYDROCHLORIDE
  15. OMEPRAZOLE [Concomitant]
     Active Substance: OMEPRAZOLE
  16. GLYCOLAX [Concomitant]
     Active Substance: POLYETHYLENE GLYCOL 3350
  17. K TAB [Concomitant]
  18. ZOLOFT [Concomitant]
     Active Substance: SERTRALINE HYDROCHLORIDE

REACTIONS (1)
  - Pruritus [Unknown]
